FAERS Safety Report 7799829-1 (Version None)
Quarter: 2011Q4

REPORT INFORMATION
  Report Type: 
  Country: None (occurrence: None)
  Receive Date: 20111006
  Receipt Date: 20110927
  Transmission Date: 20120403
  Serious: Yes (Disabling, Other)
  Sender: FDA-Public Use
  Company Number: DE-ASTRAZENECA-2011SE58011

PATIENT
  Age: 50 Year
  Sex: Male

DRUGS (1)
  1. IRESSA [Suspect]
     Indication: NON-SMALL CELL LUNG CANCER
     Route: 048
     Dates: start: 20100801

REACTIONS (2)
  - METASTASES TO CENTRAL NERVOUS SYSTEM [None]
  - CEREBRAL HAEMORRHAGE [None]
